FAERS Safety Report 21559063 (Version 1)
Quarter: 2022Q4

REPORT INFORMATION
  Report Type: Spontaneous
  Country: US (occurrence: US)
  Receive Date: 20221107
  Receipt Date: 20221107
  Transmission Date: 20230113
  Serious: Yes (Other)
  Sender: FDA-Public Use
  Company Number: US-CIPLA LTD.-2022US06476

PATIENT
  Sex: Male

DRUGS (5)
  1. ALBUTEROL [Suspect]
     Active Substance: ALBUTEROL
     Indication: Asthma
     Dosage: 1 DOSAGE FORM, PRN, EVERY 4-6 HOURS AS NEEDED EVERY DAY
     Dates: start: 202210
  2. ALBUTEROL [Suspect]
     Active Substance: ALBUTEROL
     Indication: Dyspnoea
  3. MELOXICAM [Suspect]
     Active Substance: MELOXICAM
     Indication: Inflammation
     Dosage: 7.5 MILLIGRAM, QOD (7.5 MG / PRESCRIBED TO BE TAKEN EVERY DAY (BUT HE TAKES IT EVERY OTHER DAY)
     Route: 065
     Dates: start: 2018
  4. MELOXICAM [Suspect]
     Active Substance: MELOXICAM
     Indication: Neuromuscular scoliosis
  5. GABAPENTIN [Suspect]
     Active Substance: GABAPENTIN
     Indication: Radiculopathy
     Dosage: 100 MILLIGRAM, QOD (PRESCRIBED TO BE TAKEN EVERY DAY (BUT HE TAKES IT EVERY OTHER DAY)
     Route: 065
     Dates: start: 2018

REACTIONS (6)
  - Pulmonary pain [Not Recovered/Not Resolved]
  - Dyspnoea [Not Recovered/Not Resolved]
  - Chest discomfort [Not Recovered/Not Resolved]
  - Incorrect dose administered by device [None]
  - Drug ineffective [None]
  - Inappropriate schedule of product administration [Unknown]

NARRATIVE: CASE EVENT DATE: 20221026
